FAERS Safety Report 5402376-5 (Version None)
Quarter: 2007Q3

REPORT INFORMATION
  Report Type: 
  Country: None (occurrence: None)
  Receive Date: 20070730
  Receipt Date: 20070716
  Transmission Date: 20080115
  Serious: Yes (Hospitalization)
  Sender: FDA-Public Use
  Company Number: SP01314

PATIENT
  Age: 33 Year
  Sex: Male

DRUGS (2)
  1. COLAZAL [Suspect]
     Indication: COLITIS ULCERATIVE
     Dosage: 6.75 GM (2.25 GM, 3 IN 1 D), ORAL
     Route: 048
     Dates: start: 20060401
  2. AZATHIOPRINE [Suspect]
     Dates: start: 20070601

REACTIONS (1)
  - RENAL FAILURE ACUTE [None]
